FAERS Safety Report 23062417 (Version 7)
Quarter: 2024Q1

REPORT INFORMATION
  Report Type: Spontaneous
  Country: US (occurrence: US)
  Receive Date: 20231013
  Receipt Date: 20240312
  Transmission Date: 20240410
  Serious: No
  Sender: FDA-Public Use
  Company Number: US-PFIZER INC-PV202300169543

PATIENT
  Age: 54 Year
  Sex: Female

DRUGS (4)
  1. IBRANCE [Suspect]
     Active Substance: PALBOCICLIB
     Dosage: 125 MG, CYCLIC
     Dates: end: 202310
  2. IBRANCE [Suspect]
     Active Substance: PALBOCICLIB
     Dosage: 100 MG
  3. IBRANCE [Suspect]
     Active Substance: PALBOCICLIB
     Dosage: 75 MG
  4. IBRANCE [Suspect]
     Active Substance: PALBOCICLIB
     Dosage: UNK, CYCLIC (2 WEEKS ON, 2 WEEKS OFF)

REACTIONS (17)
  - Neoplasm progression [Unknown]
  - Fatigue [Unknown]
  - Blister [Recovered/Resolved]
  - White blood cell count decreased [Not Recovered/Not Resolved]
  - Nausea [Recovered/Resolved]
  - Platelet count decreased [Unknown]
  - Pruritus [Unknown]
  - Burning sensation [Unknown]
  - Neutrophil count decreased [Unknown]
  - Swelling [Unknown]
  - Eye irritation [Unknown]
  - Pain [Unknown]
  - Poor quality sleep [Unknown]
  - Alopecia [Unknown]
  - Stomatitis [Unknown]
  - Chills [Unknown]
  - Full blood count decreased [Unknown]
